FAERS Safety Report 5671578-5 (Version None)
Quarter: 2008Q1

REPORT INFORMATION
  Report Type: 
  Country: None (occurrence: None)
  Receive Date: 20080313
  Receipt Date: 20080226
  Transmission Date: 20080703
  Serious: Yes (Life-Threatening)
  Sender: FDA-Public Use
  Company Number: 2008JP000987

PATIENT
  Sex: Female

DRUGS (1)
  1. PROGRAF [Suspect]
     Indication: LIVER TRANSPLANT
     Dosage: 0.05 MG, /D, IV NOS
     Route: 042
     Dates: start: 20080218, end: 20080225

REACTIONS (1)
  - CEREBRAL HAEMORRHAGE [None]
